FAERS Safety Report 25114355 (Version 1)
Quarter: 2025Q1

REPORT INFORMATION
  Report Type: Spontaneous
  Country: US (occurrence: US)
  Receive Date: 20250324
  Receipt Date: 20250324
  Transmission Date: 20250409
  Serious: No
  Sender: SANOFI AVENTIS
  Company Number: US-SA-2025SA084142

PATIENT
  Age: 43 Year
  Sex: Female

DRUGS (1)
  1. DUPIXENT [Suspect]
     Active Substance: DUPILUMAB
     Indication: Dermatitis atopic
     Dosage: 300 MG, QOW
     Route: 058
     Dates: start: 20250123

REACTIONS (10)
  - Skin irritation [Unknown]
  - Pigmentation disorder [Unknown]
  - Rash macular [Unknown]
  - Myalgia [Unknown]
  - Insomnia [Unknown]
  - Skin burning sensation [Unknown]
  - Injection site swelling [Unknown]
  - Injection site reaction [Unknown]
  - Dry eye [Unknown]
  - Arthralgia [Unknown]

NARRATIVE: CASE EVENT DATE: 20250101
